FAERS Safety Report 6358476-9 (Version None)
Quarter: 2009Q3

REPORT INFORMATION
  Report Type: 
  Country: None (occurrence: None)
  Receive Date: 20090916
  Receipt Date: 20081021
  Transmission Date: 20100115
  Serious: No
  Sender: FDA-Public Use
  Company Number: US-AMGEN-KDL314553

PATIENT
  Sex: Female

DRUGS (14)
  1. NEUPOGEN [Suspect]
     Indication: NEUTROPENIA
     Dates: start: 20080902
  2. PEGASYS [Concomitant]
  3. ZEGERID [Concomitant]
  4. XANAX [Concomitant]
  5. SOMA [Concomitant]
  6. DIAZEPAM [Concomitant]
  7. REGLAN [Concomitant]
  8. ADVAIR HFA [Concomitant]
  9. COMBIVENT [Concomitant]
  10. NASONEX [Concomitant]
  11. PREMARIN [Concomitant]
  12. RIBAVIRIN [Concomitant]
  13. TRENTAL [Concomitant]
  14. TRIAMCINOLONE [Concomitant]

REACTIONS (5)
  - BONE PAIN [None]
  - MALAISE [None]
  - RASH [None]
  - SINUSITIS [None]
  - SWELLING FACE [None]
